FAERS Safety Report 4818430-2 (Version None)
Quarter: 2005Q4

REPORT INFORMATION
  Report Type: 
  Country: None (occurrence: None)
  Receive Date: 20051031
  Receipt Date: 20051020
  Transmission Date: 20060501
  Serious: Yes (Other)
  Sender: FDA-Public Use
  Company Number: 2005145353

PATIENT
  Age: 34 Year
  Sex: Male

DRUGS (2)
  1. NEURONTIN [Suspect]
     Indication: NEUROPATHY
     Dates: start: 20030101, end: 20030101
  2. SECTRAL [Concomitant]

REACTIONS (6)
  - AGITATION [None]
  - ANGER [None]
  - BABESIOSIS [None]
  - DRUG INEFFECTIVE [None]
  - HALLUCINATION [None]
  - MEMORY IMPAIRMENT [None]
